FAERS Safety Report 12716133 (Version 4)
Quarter: 2017Q1

REPORT INFORMATION
  Report Type: Spontaneous
  Country: US (occurrence: US)
  Receive Date: 20160906
  Receipt Date: 20170104
  Transmission Date: 20170428
  Serious: Yes (Other)
  Sender: FDA-Public Use
  Company Number: US-SA-2016SA159315

PATIENT
  Age: 55 Year
  Sex: Female
  Weight: 81.64 kg

DRUGS (3)
  1. ICY HOT MEDICATED NO MESS APPLICATOR [Concomitant]
     Active Substance: MENTHOL
     Dosage: ROLL ON
  2. ICY HOT [Suspect]
     Active Substance: MENTHOL\METHYL SALICYLATE
     Indication: BACK PAIN
     Dosage: DOSE FORM-ROLL ON BOTTLE
     Route: 065
     Dates: end: 20160824
  3. LIDOCAINE. [Concomitant]
     Active Substance: LIDOCAINE

REACTIONS (7)
  - Burns second degree [Unknown]
  - Blister [Unknown]
  - Rash [Unknown]
  - Scar [Unknown]
  - Scab [Unknown]
  - Back pain [Unknown]
  - Pruritus [Unknown]

NARRATIVE: CASE EVENT DATE: 2016
